FAERS Safety Report 9679489 (Version 1)
Quarter: 2013Q4

REPORT INFORMATION
  Report Type: Spontaneous
  Country: US (occurrence: US)
  Receive Date: 20131109
  Receipt Date: 20131109
  Transmission Date: 20140711
  Serious: No
  Sender: FDA-Public Use
  Company Number: US-SANOFI-AVENTIS-2013SA056346

PATIENT
  Age: 27 Year
  Sex: Male

DRUGS (3)
  1. ALLEGRA-D [Suspect]
     Indication: HYPERSENSITIVITY
     Dosage: PRODUCT STARTED TWO YEARS AGO. DOSAGE - 180/240MG
     Route: 048
  2. CLARITIN [Concomitant]
     Dosage: TOOK FOR TEN YEARS.
  3. ZYRTEC [Concomitant]

REACTIONS (1)
  - Drug ineffective [Unknown]
